FAERS Safety Report 5926359-1 (Version None)
Quarter: 2008Q4

REPORT INFORMATION
  Report Type: 
  Country: None (occurrence: None)
  Receive Date: 20081022
  Receipt Date: 20081016
  Transmission Date: 20090506
  Serious: Yes (Other)
  Sender: FDA-Public Use
  Company Number: US-ROCHE-591835

PATIENT
  Sex: Female
  Weight: 73.3 kg

DRUGS (12)
  1. BONIVA [Suspect]
     Indication: OSTEOPOROSIS
     Route: 065
     Dates: start: 20081010, end: 20081010
  2. ANTIVERT [Concomitant]
     Indication: VERTIGO
  3. CRESTOR [Concomitant]
  4. SPIRIVA [Concomitant]
  5. SYNTHROID [Concomitant]
     Indication: HYPOTHYROIDISM
  6. LASIX [Concomitant]
  7. OXYCODONE HCL [Concomitant]
  8. DIAZEPAM [Concomitant]
  9. PEXEVA [Concomitant]
     Indication: DEPRESSION
  10. REGLAN [Concomitant]
     Indication: NAUSEA
  11. REQUIP [Concomitant]
     Dosage: FREQUENCY REPORTED AS : 2 MG Q HS
  12. SINGULAIR [Concomitant]

REACTIONS (1)
  - CELLULITIS [None]
